FAERS Safety Report 4518501-4 (Version None)
Quarter: 2004Q4

REPORT INFORMATION
  Report Type: 
  Country: None (occurrence: None)
  Receive Date: 20041201
  Receipt Date: 20041115
  Transmission Date: 20050328
  Serious: Yes (Hospitalization)
  Sender: FDA-Public Use
  Company Number: 207753

PATIENT
  Age: 54 Year
  Sex: Female
  Weight: 52.1637 kg

DRUGS (3)
  1. AVONEX [Suspect]
     Indication: MULTIPLE SCLEROSIS
     Dosage: QW; IM
     Route: 030
  2. ASPIRIN [Concomitant]
  3. PROZAC [Concomitant]

REACTIONS (2)
  - THROMBOSIS [None]
  - TREATMENT NONCOMPLIANCE [None]
